FAERS Safety Report 7726776-3 (Version None)
Quarter: 2011Q3

REPORT INFORMATION
  Report Type: 
  Country: None (occurrence: None)
  Receive Date: 20110831
  Receipt Date: 20110816
  Transmission Date: 20111222
  Serious: Yes (Hospitalization, Other)
  Sender: FDA-Public Use
  Company Number: LTI2011A00187

PATIENT
  Age: 80 Year
  Sex: Male

DRUGS (7)
  1. SECTRAL (ACEBUTOLOL HYDROCHLLORIDE) [Concomitant]
  2. ACTOS [Suspect]
     Indication: TYPE 2 DIABETES MELLITUS
     Dosage: 30 MG (30 MG, 1 IN 1 D), ORAL
     Route: 048
     Dates: start: 20080627, end: 20110601
  3. ASPIRIN [Concomitant]
  4. COVERAM (PERINDOPRIL, AMLODIPINE) (ANT6IHYPERTENSIVES) [Concomitant]
  5. AMARYL [Concomitant]
  6. LASIX [Concomitant]
  7. PANTOPRAZOLE [Concomitant]

REACTIONS (2)
  - URINARY BLADDER POLYP [None]
  - BLADDER TRANSITIONAL CELL CARCINOMA [None]
